FAERS Safety Report 4976920-6 (Version None)
Quarter: 2006Q2

REPORT INFORMATION
  Report Type: 
  Country: None (occurrence: None)
  Receive Date: 20060419
  Receipt Date: 20060331
  Transmission Date: 20061013
  Serious: Yes (Other)
  Sender: FDA-Public Use
  Company Number: DE-BRISTOL-MYERS SQUIBB COMPANY-13334883

PATIENT
  Age: 39 Year
  Sex: Male

DRUGS (3)
  1. REYATAZ [Suspect]
     Indication: HIV INFECTION
     Dates: start: 20050301
  2. NORVIR [Suspect]
     Indication: HIV INFECTION
     Dates: start: 20050301
  3. TRUVADA [Suspect]
     Indication: HIV INFECTION
     Dates: start: 20050301

REACTIONS (3)
  - BLOOD BILIRUBIN INCREASED [None]
  - DRUG INEFFECTIVE [None]
  - HEPATITIS ALCOHOLIC [None]
